FAERS Safety Report 6337329-6 (Version None)
Quarter: 2009Q3

REPORT INFORMATION
  Report Type: 
  Country: None (occurrence: None)
  Receive Date: 20090828
  Receipt Date: 20090828
  Transmission Date: 20100115
  Serious: Yes (Congenital Anomaly)
  Sender: FDA-Public Use
  Company Number: None

PATIENT
  Age: 47 Year
  Sex: Female
  Weight: 66.2252 kg

DRUGS (4)
  1. LETROZOLE [Suspect]
     Indication: INFERTILITY
     Dosage: 2.5 MG 5 DAYS OF CYCLE PO
     Route: 048
     Dates: start: 20080330, end: 20080404
  2. LETROZOLE [Suspect]
     Indication: OFF LABEL USE
     Dosage: 2.5 MG 5 DAYS OF CYCLE PO
     Route: 048
     Dates: start: 20080330, end: 20080404
  3. LETROZOLE [Suspect]
     Indication: INFERTILITY
     Dosage: 2.5 MG 5 DAYS OF CYCLE PO
     Route: 048
     Dates: start: 20080428, end: 20080502
  4. LETROZOLE [Suspect]
     Indication: OFF LABEL USE
     Dosage: 2.5 MG 5 DAYS OF CYCLE PO
     Route: 048
     Dates: start: 20080428, end: 20080502

REACTIONS (2)
  - DRUG EXPOSURE DURING PREGNANCY [None]
  - PREGNANCY [None]
